FAERS Safety Report 19007301 (Version 1)
Quarter: 2021Q1

REPORT INFORMATION
  Report Type: Spontaneous
  Country: US (occurrence: US)
  Receive Date: 20210315
  Receipt Date: 20210315
  Transmission Date: 20210420
  Serious: Yes (Other)
  Sender: FDA-Public Use
  Company Number: None

PATIENT
  Age: 79 Year
  Sex: Male
  Weight: 81 kg

DRUGS (11)
  1. FISH OIL [Concomitant]
     Active Substance: FISH OIL
  2. GLUCOSAMINE + MSM [Concomitant]
     Active Substance: DIMETHYL SULFONE\GLUCOSAMINE SULFATE
  3. ALPRAZOLAM 0.5 MG TABLETS [Suspect]
     Active Substance: ALPRAZOLAM
     Indication: INSOMNIA
     Route: 048
     Dates: start: 20201101, end: 20210310
  4. PENTASA [Concomitant]
     Active Substance: MESALAMINE
  5. LEVOTHYROIXINE [Concomitant]
  6. TORSEMIDE. [Concomitant]
     Active Substance: TORSEMIDE
  7. PRAVASTATIN. [Concomitant]
     Active Substance: PRAVASTATIN
  8. VITAMIN D3 [Concomitant]
     Active Substance: CHOLECALCIFEROL
  9. DILTIAZEM. [Concomitant]
     Active Substance: DILTIAZEM
  10. LOSARTAN. [Concomitant]
     Active Substance: LOSARTAN
  11. PRADAXA [Concomitant]
     Active Substance: DABIGATRAN ETEXILATE MESYLATE

REACTIONS (7)
  - Drug intolerance [None]
  - Paranasal sinus discomfort [None]
  - Product substitution issue [None]
  - Tinnitus [None]
  - Insomnia [None]
  - Headache [None]
  - Head discomfort [None]
